FAERS Safety Report 7192721-5 (Version None)
Quarter: 2010Q4

REPORT INFORMATION
  Report Type: 
  Country: None (occurrence: None)
  Receive Date: 20101221
  Receipt Date: 20101221
  Transmission Date: 20110411
  Serious: Yes (Hospitalization)
  Sender: FDA-Public Use
  Company Number: None

PATIENT
  Sex: Male
  Weight: 87 kg

DRUGS (1)
  1. DORIPENEM 500MG SHIONOGI + CO LTD. [Suspect]
     Indication: FEBRILE NEUTROPENIA
     Dosage: 500MG 8H IV
     Route: 042
     Dates: start: 20101212, end: 20101214

REACTIONS (1)
  - BLOOD BILIRUBIN INCREASED [None]
